FAERS Safety Report 24765416 (Version 1)
Quarter: 2024Q4

REPORT INFORMATION
  Report Type: Spontaneous
  Country: IT (occurrence: IT)
  Receive Date: 20241223
  Receipt Date: 20241223
  Transmission Date: 20250115
  Serious: Yes (Other)
  Sender: ACCORD
  Company Number: None

PATIENT
  Age: 66 Year
  Sex: Male

DRUGS (1)
  1. CAPECITABINE [Suspect]
     Active Substance: CAPECITABINE
     Indication: Pancreatic neuroendocrine tumour metastatic
     Dosage: CAPECITABINE 2000 MG/M2 DAY1--+GT;14 Q28
     Dates: start: 20240416

REACTIONS (1)
  - Hypercholesterolaemia [Recovering/Resolving]

NARRATIVE: CASE EVENT DATE: 20241025
